FAERS Safety Report 5213785-1 (Version None)
Quarter: 2007Q1

REPORT INFORMATION
  Report Type: 
  Country: None (occurrence: None)
  Receive Date: 20070119
  Receipt Date: 20070109
  Transmission Date: 20070707
  Serious: Yes (Hospitalization)
  Sender: FDA-Public Use
  Company Number: JP-PFIZER INC-2006115238

PATIENT
  Sex: Female

DRUGS (8)
  1. ZYVOX [Suspect]
     Indication: STAPHYLOCOCCAL INFECTION
     Route: 042
     Dates: start: 20060916, end: 20060920
  2. FINIBAX [Concomitant]
     Dosage: DAILY DOSE:.5GRAM
     Route: 042
     Dates: start: 20060909, end: 20060915
  3. VANCOMYCIN [Concomitant]
     Dosage: DAILY DOSE:1GRAM
     Route: 042
     Dates: start: 20060909, end: 20060915
  4. VOGLIBOSE [Concomitant]
     Indication: DIABETES MELLITUS
     Route: 048
     Dates: start: 20060817, end: 20060920
  5. TAKEPRON [Concomitant]
     Indication: GASTRIC ULCER HAEMORRHAGE
     Route: 048
     Dates: start: 20060816, end: 20060920
  6. MAXIPIME [Concomitant]
     Dosage: DAILY DOSE:2GRAM
     Route: 042
     Dates: start: 20060816, end: 20060922
  7. GAMIMUNE N 5% [Concomitant]
     Route: 042
     Dates: start: 20060915, end: 20060917
  8. ORGARAN [Concomitant]
     Route: 042
     Dates: start: 20060915, end: 20060919

REACTIONS (3)
  - DELIRIUM [None]
  - NAUSEA [None]
  - VOMITING [None]
